FAERS Safety Report 7399945-2 (Version None)
Quarter: 2011Q2

REPORT INFORMATION
  Report Type: 
  Country: None (occurrence: None)
  Receive Date: 20110405
  Receipt Date: 20110405
  Transmission Date: 20111010
  Serious: Yes (Other)
  Sender: FDA-Public Use
  Company Number: None

PATIENT
  Age: 59 Year
  Sex: Male
  Weight: 120 kg

DRUGS (1)
  1. DAKIN'S 1/2 STRENGTH SOLUTION [Suspect]
     Indication: WOUND INFECTION
     Dosage: DAKIN'S 1/2 STRENGTH SOLUTION
     Route: 061
     Dates: start: 20101102

REACTIONS (1)
  - RASH GENERALISED [None]
